FAERS Safety Report 5365569-1 (Version None)
Quarter: 2007Q2

REPORT INFORMATION
  Report Type: 
  Country: None (occurrence: None)
  Receive Date: 20070621
  Receipt Date: 20070608
  Transmission Date: 20071010
  Serious: Yes (Disabling, Other)
  Sender: FDA-Public Use
  Company Number: GB-ASTRAZENECA-2007GB01216

PATIENT
  Age: 52 Year
  Sex: Female
  Weight: 80 kg

DRUGS (3)
  1. QUETIAPINE [Suspect]
     Indication: AFFECTIVE DISORDER
     Route: 048
     Dates: start: 20070403, end: 20070525
  2. DULOXETINE [Concomitant]
     Indication: DEPRESSION
     Route: 048
     Dates: start: 20070518
  3. LEVOTHYROXINE SODIUM [Concomitant]
     Indication: HYPOTHYROIDISM
     Route: 048
     Dates: start: 19930101

REACTIONS (3)
  - CONDITION AGGRAVATED [None]
  - DEPRESSION [None]
  - HYPOTHYROIDISM [None]
